FAERS Safety Report 8502131-3 (Version None)
Quarter: 2012Q2

REPORT INFORMATION
  Report Type: 
  Country: None (occurrence: None)
  Receive Date: 20120405
  Receipt Date: 20101116
  Transmission Date: 20120825
  Serious: Yes (Disabling, Other)
  Sender: FDA-Public Use
  Company Number: PHHY2010US68216

PATIENT
  Age: 72 Year
  Sex: Female
  Weight: 132 kg

DRUGS (1)
  1. RECLAST [Suspect]
     Indication: OSTEOPOROSIS
     Dosage: 5 MG, INTRAVENOUS
     Route: 042
     Dates: start: 20100906

REACTIONS (4)
  - ABDOMINAL PAIN [None]
  - FATIGUE [None]
  - BACK PAIN [None]
  - DIARRHOEA [None]
